FAERS Safety Report 25892092 (Version 1)
Quarter: 2025Q4

REPORT INFORMATION
  Report Type: Spontaneous
  Country: US (occurrence: US)
  Receive Date: 20251007
  Receipt Date: 20251007
  Transmission Date: 20260118
  Serious: Yes (Hospitalization)
  Sender: SANDOZ
  Company Number: US-MLMSERVICE-20250919-PI651226-00101-1

PATIENT
  Age: 67 Year
  Sex: Female

DRUGS (5)
  1. CYCLOPHOSPHAMIDE [Suspect]
     Active Substance: CYCLOPHOSPHAMIDE
     Indication: Triple negative breast cancer
     Dosage: SEVERAL CYCLES OF CHEMOTHERAPY WITH THE  LAST DOSE RECEIVED 3 MONTHS PRIOR TO THIS  PRESENTATION
     Route: 065
  2. CISPLATIN [Suspect]
     Active Substance: CISPLATIN
     Indication: Triple negative breast cancer
     Dosage: SEVERAL CYCLES OF CHEMOTHERAPY WITH THE  LAST DOSE RECEIVED 3 MONTHS PRIOR TO THIS  PRESENTATION
     Route: 065
  3. DOXORUBICIN HYDROCHLORIDE [Suspect]
     Active Substance: DOXORUBICIN HYDROCHLORIDE
     Indication: Triple negative breast cancer
     Dosage: UNK
     Route: 065
  4. PACLITAXEL [Suspect]
     Active Substance: PACLITAXEL
     Indication: Triple negative breast cancer
     Dosage: SEVERAL CYCLES OF CHEMOTHERAPY WITH THE  LAST DOSE RECEIVED 3 MONTHS PRIOR TO THIS  PRESENTATION
     Route: 065
  5. PEMBROLIZUMAB [Suspect]
     Active Substance: PEMBROLIZUMAB
     Indication: Triple negative breast cancer
     Dosage: SEVERAL CYCLES OF CHEMOTHERAPY WITH THE  LAST DOSE RECEIVED 3 MONTHS PRIOR TO THIS  PRESENTATION
     Route: 065

REACTIONS (5)
  - Febrile neutropenia [Unknown]
  - COVID-19 [Unknown]
  - Pancytopenia [Unknown]
  - Cytomegalovirus viraemia [Unknown]
  - Systemic candida [Unknown]
